FAERS Safety Report 11668610 (Version 5)
Quarter: 2016Q1

REPORT INFORMATION
  Report Type: Spontaneous
  Country: JP (occurrence: JP)
  Receive Date: 20151027
  Receipt Date: 20160217
  Transmission Date: 20160525
  Serious: Yes (Hospitalization, Other)
  Sender: FDA-Public Use
  Company Number: JP-GLAXOSMITHKLINE-JP2015JPN148396

PATIENT
  Age: 44 Year
  Sex: Male

DRUGS (3)
  1. EPZICOM [Suspect]
     Active Substance: ABACAVIR SULFATE\LAMIVUDINE
     Indication: HIV INFECTION
     Dosage: 1 DF, QD
     Route: 048
     Dates: start: 200903, end: 20150721
  2. STOCRIN [Suspect]
     Active Substance: EFAVIRENZ
     Indication: HIV INFECTION
     Dosage: 600 MG, QD
     Route: 048
     Dates: start: 20090309, end: 20110831
  3. ISENTRESS [Concomitant]
     Active Substance: RALTEGRAVIR POTASSIUM
     Indication: HIV INFECTION
     Dosage: 1 DF, BID
     Dates: start: 201109, end: 20150721

REACTIONS (12)
  - Muscular weakness [Unknown]
  - Hyperthyroidism [Unknown]
  - Fall [Unknown]
  - Hypokalaemia [Unknown]
  - Hyperreflexia [Unknown]
  - Anti-thyroid antibody positive [Unknown]
  - Basedow^s disease [Recovered/Resolved]
  - Quadriplegia [Recovering/Resolving]
  - Paralysis [Recovering/Resolving]
  - Blood potassium decreased [Unknown]
  - Immune reconstitution inflammatory syndrome [Recovered/Resolved]
  - Spinal column stenosis [Unknown]

NARRATIVE: CASE EVENT DATE: 20111001
